FAERS Safety Report 14629638 (Version 1)
Quarter: 2018Q1

REPORT INFORMATION
  Report Type: Spontaneous
  Country: US (occurrence: US)
  Receive Date: 20180312
  Receipt Date: 20180312
  Transmission Date: 20180509
  Serious: Yes (Hospitalization, Other)
  Sender: FDA-Public Use
  Company Number: None

PATIENT
  Age: 42 Year
  Sex: Male
  Weight: 87.3 kg

DRUGS (9)
  1. NOVOLOG FLEXPEN U-100 [Concomitant]
  2. LANTUS SOLOSTAR U-100 [Concomitant]
  3. ERTAPENEM. [Concomitant]
     Active Substance: ERTAPENEM SODIUM
     Dates: start: 20180307
  4. VANCOMYCIN [Suspect]
     Active Substance: VANCOMYCIN
     Indication: DIABETIC ULCER
     Route: 041
  5. NORMAL SALINE FLUSH [Concomitant]
     Active Substance: SODIUM CHLORIDE
     Dates: start: 20180201
  6. VANCOMYCIN [Suspect]
     Active Substance: VANCOMYCIN
     Indication: OSTEOMYELITIS
     Route: 041
  7. BACTROBAN TOPICAL [Concomitant]
  8. RIVAROXABAN [Concomitant]
     Active Substance: RIVAROXABAN
     Dates: start: 20180208
  9. HEPARIN FLUSH 100UNITS/ML [Concomitant]
     Dates: start: 20180210

REACTIONS (9)
  - Pruritus [None]
  - Blood alkaline phosphatase increased [None]
  - Drug reaction with eosinophilia and systemic symptoms [None]
  - Alanine aminotransferase increased [None]
  - Eosinophil count increased [None]
  - Blood bilirubin increased [None]
  - Rash [None]
  - Aspartate aminotransferase increased [None]
  - Pyrexia [None]

NARRATIVE: CASE EVENT DATE: 20180310
